FAERS Safety Report 16865736 (Version 1)
Quarter: 2019Q3

REPORT INFORMATION
  Report Type: Spontaneous
  Country: US (occurrence: US)
  Receive Date: 20190930
  Receipt Date: 20190930
  Transmission Date: 20191005
  Serious: No
  Sender: FDA-Public Use
  Company Number: US-TORRENT-00009019

PATIENT
  Sex: Female

DRUGS (4)
  1. TRAMADOL. [Concomitant]
     Active Substance: TRAMADOL
     Indication: BACK PAIN
     Dosage: ON AND OFF FOR A COUPLE YEARS
     Route: 048
  2. AMBIEN [Suspect]
     Active Substance: ZOLPIDEM TARTRATE
     Indication: INSOMNIA
     Dosage: 10MG TABLET AS NEEDED BY MOUTH
     Route: 048
  3. ZOLPIDEM [Suspect]
     Active Substance: ZOLPIDEM TARTRATE
     Indication: FIBROMYALGIA
  4. LYRICA [Concomitant]
     Active Substance: PREGABALIN
     Indication: FIBROMYALGIA
     Dosage: 75MG TWICE A DAY BY MOUTH, ONE IN MORNING ONE AT NIGHT
     Route: 048
     Dates: start: 201906

REACTIONS (2)
  - Serum serotonin increased [Unknown]
  - Off label use [Unknown]
